FAERS Safety Report 8584011-0 (Version None)
Quarter: 2012Q3

REPORT INFORMATION
  Report Type: 
  Country: None (occurrence: None)
  Receive Date: 20120810
  Receipt Date: 20120725
  Transmission Date: 20120928
  Serious: No
  Sender: FDA-Public Use
  Company Number: US-009507513-1207USA011435

PATIENT

DRUGS (2)
  1. DULERA [Suspect]
     Indication: ASTHMA
     Dosage: 1 DF, BID
     Route: 055
     Dates: start: 20120201
  2. VENTOLIN [Concomitant]

REACTIONS (2)
  - PRODUCT QUALITY ISSUE [None]
  - CHEST DISCOMFORT [None]
